FAERS Safety Report 8943470 (Version 1)
Quarter: 2012Q4

REPORT INFORMATION
  Report Type: 
  Country: US (occurrence: US)
  Receive Date: 20121204
  Receipt Date: 20121204
  Transmission Date: 20130627
  Serious: No
  Sender: FDA-Public Use
  Company Number: US-PFIZER INC-2012300918

PATIENT
  Age: 68 Year
  Sex: Female
  Weight: 68.93 kg

DRUGS (2)
  1. PREMARIN [Suspect]
     Indication: VAGINAL DRYNESS
     Dosage: UNK
     Route: 067
  2. PREMARIN [Suspect]
     Dosage: UNK
     Route: 067
     Dates: start: 20121101

REACTIONS (1)
  - Breast tenderness [Not Recovered/Not Resolved]
